FAERS Safety Report 12184467 (Version 1)
Quarter: 2016Q1

REPORT INFORMATION
  Report Type: Spontaneous
  Country: US (occurrence: US)
  Receive Date: 20160316
  Receipt Date: 20160316
  Transmission Date: 20160526
  Serious: Yes (Hospitalization, Other)
  Sender: FDA-Public Use
  Company Number: US-PFIZER INC-2016152663

PATIENT
  Age: 60 Year
  Sex: Male

DRUGS (12)
  1. CORTISONE ACETATE. [Suspect]
     Active Substance: CORTISONE ACETATE
     Dosage: 12.5 MG, DAILY
  2. CORTISONE ACETATE. [Suspect]
     Active Substance: CORTISONE ACETATE
     Dosage: 100 MG, DAILY
  3. DOCA [Concomitant]
     Dosage: 6.25 MG, DAILY
  4. CORTISONE ACETATE. [Suspect]
     Active Substance: CORTISONE ACETATE
     Indication: HORMONE REPLACEMENT THERAPY
     Dosage: 25 MG, DAILY
  5. CORTISONE ACETATE. [Suspect]
     Active Substance: CORTISONE ACETATE
     Dosage: 6.25 MG, DAILY
  6. CORTISONE ACETATE. [Suspect]
     Active Substance: CORTISONE ACETATE
     Dosage: 6.25 MG, DAILY
  7. CORTISONE ACETATE. [Suspect]
     Active Substance: CORTISONE ACETATE
     Dosage: 6.25 MG, DAILY
  8. CORTISONE ACETATE. [Suspect]
     Active Substance: CORTISONE ACETATE
     Dosage: 31.25 MG, UNK
  9. CORTISONE ACETATE. [Suspect]
     Active Substance: CORTISONE ACETATE
     Dosage: 60 MG, DAILY
  10. DOCA [Concomitant]
     Indication: HORMONE REPLACEMENT THERAPY
     Dosage: 25 MG, DAILY
  11. CORTISONE ACETATE. [Suspect]
     Active Substance: CORTISONE ACETATE
     Dosage: 25 MG, UNK
  12. CORTISONE ACETATE. [Suspect]
     Active Substance: CORTISONE ACETATE
     Dosage: 25 MG, DAILY

REACTIONS (3)
  - Mental disorder [Recovered/Resolved]
  - Incorrect dose administered [Unknown]
  - Hallucination [Recovered/Resolved]
